FAERS Safety Report 7307218-9 (Version None)
Quarter: 2011Q1

REPORT INFORMATION
  Report Type: 
  Country: None (occurrence: None)
  Receive Date: 20110223
  Receipt Date: 20110219
  Transmission Date: 20110831
  Serious: Yes (Other)
  Sender: FDA-Public Use
  Company Number: US-PFIZER INC-2011036787

PATIENT
  Age: 3 Year
  Sex: Male
  Weight: 22.676 kg

DRUGS (1)
  1. CHILDREN'S ADVIL [Suspect]
     Indication: PYREXIA
     Dosage: UNK
     Route: 048
     Dates: start: 20110218

REACTIONS (3)
  - SWELLING FACE [None]
  - PRURITUS [None]
  - URTICARIA [None]
